FAERS Safety Report 10227768 (Version 1)
Quarter: 2014Q2

REPORT INFORMATION
  Report Type: Spontaneous
  Country: US (occurrence: US)
  Receive Date: 20140610
  Receipt Date: 20140610
  Transmission Date: 20141212
  Serious: Yes (Life-Threatening, Other)
  Sender: FDA-Public Use
  Company Number: US-MALLINCKRODT-T201402418

PATIENT
  Sex: 0

DRUGS (3)
  1. OFIRMEV [Suspect]
     Indication: PROCEDURAL PAIN
     Dosage: UNK
     Route: 042
  2. TORADOL [Suspect]
     Indication: PROCEDURAL PAIN
     Dosage: UNK
     Route: 065
  3. LISINOPRIL [Suspect]
     Indication: PRODUCT USED FOR UNKNOWN INDICATION
     Dosage: UNK
     Route: 065

REACTIONS (2)
  - Angioedema [Recovered/Resolved]
  - Drug interaction [Recovered/Resolved]
